FAERS Safety Report 8484217-5 (Version None)
Quarter: 2012Q3

REPORT INFORMATION
  Report Type: 
  Country: None (occurrence: None)
  Receive Date: 20120703
  Receipt Date: 20120628
  Transmission Date: 20120928
  Serious: Yes (Death, Other)
  Sender: FDA-Public Use
  Company Number: JP-JNJFOC-20120700271

PATIENT
  Age: 59 Year
  Sex: Male

DRUGS (5)
  1. TRAMADOL HCL [Suspect]
     Indication: PRODUCT USED FOR UNKNOWN INDICATION
     Dosage: 1 PER 1 DAY TABLET
     Route: 048
  2. AN UNKNOWN MEDICATION [Concomitant]
     Route: 065
  3. MORPHINE [Concomitant]
     Route: 048
  4. WARFARIN POTASSIUM [Concomitant]
     Route: 048
  5. MORPHINE HYDROCHLORIDE [Concomitant]
     Route: 048

REACTIONS (2)
  - GENERAL PHYSICAL HEALTH DETERIORATION [None]
  - OESOPHAGEAL VARICES HAEMORRHAGE [None]
